FAERS Safety Report 25407034 (Version 3)
Quarter: 2025Q3

REPORT INFORMATION
  Report Type: Spontaneous
  Country: AU (occurrence: AU)
  Receive Date: 20250606
  Receipt Date: 20250708
  Transmission Date: 20251021
  Serious: Yes (Hospitalization, Other)
  Sender: SANOFI AVENTIS
  Company Number: AU-SA-2025SA134273

PATIENT
  Age: 25 Year
  Sex: Female

DRUGS (3)
  1. LEMTRADA [Suspect]
     Active Substance: ALEMTUZUMAB
     Indication: Multiple sclerosis
     Dosage: 12 MG, QD
     Route: 040
     Dates: start: 20240930, end: 20241002
  2. CANNABIS SATIVA SUBSP. INDICA TOP [Concomitant]
     Active Substance: CANNABIS SATIVA SUBSP. INDICA TOP
  3. LAMOTRIGINE [Concomitant]
     Active Substance: LAMOTRIGINE
     Indication: Bipolar disorder

REACTIONS (19)
  - Pneumomediastinum [Recovered/Resolved]
  - Lung opacity [Recovered/Resolved]
  - Pneumomediastinum [Recovered/Resolved]
  - Lung opacity [Unknown]
  - Haemoptysis [Recovered/Resolved]
  - Chest pain [Recovered/Resolved]
  - Pneumonia [Recovered/Resolved]
  - X-ray with contrast upper gastrointestinal tract abnormal [Unknown]
  - Bacterial test positive [Recovered/Resolved]
  - Lung consolidation [Unknown]
  - Blood creatine phosphokinase abnormal [Unknown]
  - Electrocardiogram T wave abnormal [Unknown]
  - C-reactive protein abnormal [Unknown]
  - Blood bicarbonate abnormal [Unknown]
  - Blood urea abnormal [Unknown]
  - Anion gap abnormal [Unknown]
  - Atelectasis [Unknown]
  - Full blood count abnormal [Unknown]
  - Paraesthesia [Recovered/Resolved]

NARRATIVE: CASE EVENT DATE: 20241002
